FAERS Safety Report 8518791-7 (Version None)
Quarter: 2012Q3

REPORT INFORMATION
  Report Type: 
  Country: None (occurrence: None)
  Receive Date: 20120718
  Receipt Date: 20120712
  Transmission Date: 20120928
  Serious: Yes (Hospitalization)
  Sender: FDA-Public Use
  Company Number: PHEH2012US011696

PATIENT
  Sex: Female

DRUGS (3)
  1. COZAAR [Suspect]
  2. DIOVAN [Suspect]
  3. LOSARTAN POTASSIUM [Suspect]

REACTIONS (2)
  - DIZZINESS [None]
  - HEART RATE IRREGULAR [None]
